FAERS Safety Report 5845512-9 (Version None)
Quarter: 2008Q3

REPORT INFORMATION
  Report Type: 
  Country: None (occurrence: None)
  Receive Date: 20080731
  Receipt Date: 20080505
  Transmission Date: 20090109
  Serious: No
  Sender: FDA-Public Use
  Company Number: US200805000874

PATIENT
  Age: 49 Year
  Sex: Female

DRUGS (3)
  1. BYETTA [Suspect]
     Dosage: 5 UG, SUBCUTANEOUS; 5 UG, SUBCUTANEOUS
     Route: 058
     Dates: start: 20070501, end: 20070101
  2. BYETTA [Suspect]
     Dosage: 5 UG, SUBCUTANEOUS; 5 UG, SUBCUTANEOUS
     Route: 058
     Dates: start: 20071201
  3. EXENATIDE 5MCG PEN, DISPOSABLE DEVICE (EXENATIDE (5MCG)) PEN,DISPOSABL [Concomitant]

REACTIONS (1)
  - HEARING IMPAIRED [None]
